FAERS Safety Report 20818102 (Version 2)
Quarter: 2023Q1

REPORT INFORMATION
  Report Type: Report from Study
  Country: US (occurrence: None)
  Receive Date: 20220512
  Receipt Date: 20230228
  Transmission Date: 20230417
  Serious: Yes (Other)
  Sender: FDA-Public Use
  Company Number: US-ROCHE-2686529

PATIENT
  Age: 53 Year
  Sex: Female
  Weight: 84.1 kg

DRUGS (4)
  1. ATEZOLIZUMAB [Suspect]
     Active Substance: ATEZOLIZUMAB
     Indication: Invasive breast carcinoma
     Dosage: ON DAYS 1 AND 22 ?ON 27/AUG/2020,  SHE RECEIVED MOST RECENT DOSE OF ATEZOLIZUMAB
     Route: 042
     Dates: start: 20200109
  2. TRASTUZUMAB [Suspect]
     Active Substance: TRASTUZUMAB
     Indication: Invasive breast carcinoma
     Dosage: LOADING DOSE OF 8 MG/KG FOLLOWED BY MAINTENANCE DOSE OF 6 MG/KG?ON 27/AUG/2020, SHE RECEIVED MOST RE
     Route: 042
     Dates: start: 20200109
  3. PERTUZUMAB [Suspect]
     Active Substance: PERTUZUMAB
     Indication: Invasive breast carcinoma
     Dosage: ON DAYS 1 AND 22?ON 27/AUG/2020, SHE RECEIVED MOST RECENT DOSE OF 840 MG
     Route: 042
     Dates: start: 20200109
  4. PACLITAXEL [Suspect]
     Active Substance: PACLITAXEL
     Indication: Invasive breast carcinoma
     Dosage: ON 18/JUN/2020, SHE RECEIVED MOST RECENT DOSE OF PACLITAXEL ?ON DAYS 1, 8, 15, 22, 29, AND 36 OF THE
     Route: 042
     Dates: start: 20200109

REACTIONS (3)
  - Ejection fraction decreased [Recovering/Resolving]
  - Cardiac failure [Recovering/Resolving]
  - Syncope [Unknown]

NARRATIVE: CASE EVENT DATE: 20200914
